FAERS Safety Report 10677845 (Version 2)
Quarter: 2015Q1

REPORT INFORMATION
  Report Type: Spontaneous
  Country: TR (occurrence: TR)
  Receive Date: 20141229
  Receipt Date: 20150114
  Transmission Date: 20150720
  Serious: Yes (Hospitalization)
  Sender: FDA-Public Use
  Company Number: TR-ACCORD-027806

PATIENT
  Age: 25 Year
  Sex: Male

DRUGS (3)
  1. CICLOSPORIN [Suspect]
     Active Substance: CYCLOSPORINE
     Indication: RENAL TRANSPLANT
     Dosage: REDUCED DOSE OF CYCLOSPORIN WAS 1 MG/KG/DAY.
  2. PREDNOL [Concomitant]
     Active Substance: METHYLPREDNISOLONE
  3. MYCOPHENOLIC ACID. [Suspect]
     Active Substance: MYCOPHENOLIC ACID
     Indication: RENAL TRANSPLANT
     Dosage: REDUCED DOSE OF MMF WAS 1 G/DAY

REACTIONS (1)
  - West Nile viral infection [Recovering/Resolving]
